FAERS Safety Report 9560698 (Version 2)
Quarter: 2013Q4

REPORT INFORMATION
  Report Type: Spontaneous
  Country: JP (occurrence: JP)
  Receive Date: 20130927
  Receipt Date: 20131021
  Transmission Date: 20140711
  Serious: Yes (Hospitalization)
  Sender: FDA-Public Use
  Company Number: JP-NOVOPROD-388122

PATIENT
  Age: 25 Year
  Sex: Female

DRUGS (5)
  1. NOVORAPID CHU FLEXPEN [Suspect]
     Indication: GESTATIONAL DIABETES
     Dosage: 60 IU, QD
     Route: 058
     Dates: start: 201109, end: 201204
  2. NOVORAPID CHU FLEXPEN [Suspect]
     Dosage: 10 IU, QD
     Route: 058
     Dates: start: 201109, end: 201204
  3. NOVOLIN N CHU FLEXPEN [Suspect]
     Indication: GESTATIONAL DIABETES
     Dosage: 6 IU, QD
     Route: 058
     Dates: start: 201105, end: 201204
  4. NOVOLIN R CHU FLEXPEN [Suspect]
     Indication: GESTATIONAL DIABETES
     Dosage: 8 IU, QD
     Route: 058
     Dates: start: 201105, end: 201109
  5. HUMALOG [Concomitant]
     Indication: GESTATIONAL DIABETES
     Dosage: 16 IU, QD
     Route: 058
     Dates: start: 201106, end: 201107

REACTIONS (3)
  - Anti-insulin antibody positive [Not Recovered/Not Resolved]
  - Diabetes mellitus inadequate control [Recovered/Resolved]
  - Exposure during pregnancy [Recovered/Resolved]
